FAERS Safety Report 7965904-1 (Version None)
Quarter: 2011Q4

REPORT INFORMATION
  Report Type: 
  Country: None (occurrence: None)
  Receive Date: 20111208
  Receipt Date: 20111201
  Transmission Date: 20120403
  Serious: Yes (Death, Congenital Anomaly)
  Sender: FDA-Public Use
  Company Number: FR-GLAXOSMITHKLINE-B0748262A

PATIENT
  Sex: Male

DRUGS (2)
  1. SUMATRIPTAN SUCCINATE [Suspect]
     Indication: MIGRAINE WITH AURA
     Route: 064
     Dates: start: 20110101, end: 20110101
  2. ANTIBIOTIC [Concomitant]
     Indication: URINARY TRACT INFECTION
     Route: 064

REACTIONS (3)
  - FOETAL EXPOSURE DURING PREGNANCY [None]
  - CEREBRAL VENTRICLE DILATATION [None]
  - CONGENITAL HYDROCEPHALUS [None]
